FAERS Safety Report 6284461-1 (Version None)
Quarter: 2009Q3

REPORT INFORMATION
  Report Type: 
  Country: None (occurrence: None)
  Receive Date: 20090727
  Receipt Date: 20090716
  Transmission Date: 20100115
  Serious: Yes (Other)
  Sender: FDA-Public Use
  Company Number: DE-AMGEN-QUU356148

PATIENT
  Sex: Male

DRUGS (8)
  1. NEULASTA [Suspect]
     Indication: CHEMOTHERAPY
     Route: 065
  2. CYCLOPHOSPHAMIDE [Concomitant]
  3. ADRIAMYCIN RDF [Concomitant]
  4. ETOPOSIDE [Concomitant]
  5. VINCRISTINE [Concomitant]
  6. BLEOMYCIN SULFATE [Concomitant]
  7. PROCARBAZINE [Concomitant]
  8. PREDNISONE [Concomitant]

REACTIONS (3)
  - PHARYNGEAL OEDEMA [None]
  - SWELLING [None]
  - THROAT IRRITATION [None]
